FAERS Safety Report 21219083 (Version 2)
Quarter: 2022Q4

REPORT INFORMATION
  Report Type: Report from Study
  Country: CA (occurrence: CA)
  Receive Date: 20220816
  Receipt Date: 20221101
  Transmission Date: 20230113
  Serious: Yes (Other)
  Sender: FDA-Public Use
  Company Number: CA-ABBVIE-22K-028-4500730-00

PATIENT
  Age: 30 Year
  Sex: Female

DRUGS (1)
  1. HUMIRA [Suspect]
     Active Substance: ADALIMUMAB
     Indication: Crohn^s disease
     Route: 058
     Dates: start: 20150709

REACTIONS (12)
  - Obstruction [Unknown]
  - Neoplasm malignant [Unknown]
  - Ileal stenosis [Unknown]
  - Faecal volume decreased [Unknown]
  - Hyperaemia [Unknown]
  - Inflammation [Unknown]
  - Crohn^s disease [Unknown]
  - Abdominal discomfort [Unknown]
  - Chest pain [Unknown]
  - Vomiting [Unknown]
  - Ileocaecal resection [Unknown]
  - Infrequent bowel movements [Unknown]

NARRATIVE: CASE EVENT DATE: 20220401
